FAERS Safety Report 18609284 (Version 2)
Quarter: 2021Q1

REPORT INFORMATION
  Report Type: Spontaneous
  Country: SK (occurrence: SK)
  Receive Date: 20201214
  Receipt Date: 20210317
  Transmission Date: 20210419
  Serious: Yes (Other)
  Sender: FDA-Public Use
  Company Number: SK-LUPIN PHARMACEUTICALS INC.-2020-10251

PATIENT
  Age: 75 Year
  Sex: Male

DRUGS (7)
  1. AZITHROMYCIN ANHYDROUS. [Suspect]
     Active Substance: AZITHROMYCIN ANHYDROUS
     Dosage: 250 MILLIGRAM, QD (FOR THE NEXT 10 DAYS)
     Route: 065
     Dates: start: 2020
  2. HYDROXYCHLOROQUINE [Suspect]
     Active Substance: HYDROXYCHLOROQUINE
     Dosage: 200 MILLIGRAM, BID FOR THE SUBSEQUENT DAYS
     Route: 065
     Dates: start: 2020
  3. 5?FLUOROURACIL [FLUOROURACIL] [Concomitant]
     Active Substance: FLUOROURACIL
     Indication: GASTRIC CANCER STAGE II
     Dosage: UNK
     Route: 065
  4. AZITHROMYCIN ANHYDROUS. [Suspect]
     Active Substance: AZITHROMYCIN ANHYDROUS
     Indication: COVID-19
     Dosage: 500 MILLIGRAM, QD
     Route: 065
     Dates: start: 2020, end: 2020
  5. HYDROXYCHLOROQUINE [Suspect]
     Active Substance: HYDROXYCHLOROQUINE
     Indication: COVID-19
     Dosage: 400 MILLIGRAM, BID
     Route: 065
     Dates: start: 2020, end: 2020
  6. LEVOFOLIC [Concomitant]
     Active Substance: LEUCOVORIN
     Indication: GASTRIC CANCER STAGE II
     Dosage: UNK
     Route: 065
  7. OXALIPLATIN. [Concomitant]
     Active Substance: OXALIPLATIN
     Indication: GASTRIC CANCER STAGE II
     Dosage: UNK
     Route: 065

REACTIONS (1)
  - Off label use [Unknown]
